FAERS Safety Report 9284376 (Version 2)
Quarter: 2013Q2

REPORT INFORMATION
  Report Type: Spontaneous
  Country: IT (occurrence: IT)
  Receive Date: 20130510
  Receipt Date: 20130521
  Transmission Date: 20140414
  Serious: Yes (Death, Hospitalization, Other)
  Sender: FDA-Public Use
  Company Number: IT-GENZYME-POMP-1002972

PATIENT
  Age: 56 Year
  Sex: Female

DRUGS (1)
  1. MYOZYME [Suspect]
     Indication: GLYCOGEN STORAGE DISEASE TYPE II
     Dosage: UNK
     Route: 042

REACTIONS (6)
  - Death [Fatal]
  - Intestinal obstruction [Not Recovered/Not Resolved]
  - Cardiovascular disorder [Unknown]
  - Electrolyte imbalance [Unknown]
  - Constipation [Unknown]
  - Pyrexia [Unknown]
